FAERS Safety Report 7600893-0 (Version None)
Quarter: 2011Q3

REPORT INFORMATION
  Report Type: 
  Country: None (occurrence: None)
  Receive Date: 20110711
  Receipt Date: 20110310
  Transmission Date: 20111222
  Serious: No
  Sender: FDA-Public Use
  Company Number: US-MYLANLABS-2011S1004711

PATIENT
  Age: 75 Year
  Sex: Female
  Weight: 120 kg

DRUGS (1)
  1. FLURBIPROFEN [Suspect]
     Indication: PAIN
     Route: 048
     Dates: start: 20110207, end: 20110207

REACTIONS (3)
  - NAUSEA [None]
  - VOMITING [None]
  - DIARRHOEA [None]
